FAERS Safety Report 5415474-7 (Version None)
Quarter: 2007Q3

REPORT INFORMATION
  Report Type: 
  Country: None (occurrence: None)
  Receive Date: 20070815
  Receipt Date: 20070803
  Transmission Date: 20080115
  Serious: Yes (Life-Threatening, Hospitalization)
  Sender: FDA-Public Use
  Company Number: GB-ROCHE-510685

PATIENT
  Age: 52 Year
  Sex: Female
  Weight: 70 kg

DRUGS (10)
  1. CEFTRIAXONE SODIUM [Suspect]
     Indication: DRUG USE FOR UNKNOWN INDICATION
     Route: 042
     Dates: start: 20070726, end: 20070727
  2. FERROUS SULFATE TAB [Concomitant]
     Route: 048
     Dates: start: 20070726
  3. FUROSEMIDE [Concomitant]
     Route: 048
  4. GABAPENTIN [Concomitant]
     Route: 048
     Dates: start: 20070726
  5. LEVOTHYROXINE SODIUM [Concomitant]
     Route: 048
     Dates: start: 20070726
  6. MS CONTIN [Concomitant]
     Route: 048
     Dates: start: 20070726
  7. OMEPRAZOLE [Concomitant]
     Route: 048
     Dates: start: 20070726
  8. PARACETAMOL [Concomitant]
     Route: 048
     Dates: start: 20070726
  9. QUININE SULFATE [Concomitant]
     Route: 048
     Dates: start: 20070726
  10. ZOLPIDEM TARTRATE [Concomitant]
     Route: 048

REACTIONS (2)
  - BRONCHOSPASM [None]
  - HYPOXIA [None]
